FAERS Safety Report 24310141 (Version 4)
Quarter: 2025Q3

REPORT INFORMATION
  Report Type: Spontaneous
  Country: US (occurrence: US)
  Receive Date: 20240912
  Receipt Date: 20250816
  Transmission Date: 20251021
  Serious: No
  Sender: ALEXION PHARMACEUTICALS
  Company Number: 2024A206819

PATIENT
  Sex: Male

DRUGS (1)
  1. BREZTRI [Suspect]
     Active Substance: BUDESONIDE\FORMOTEROL\GLYCOPYRROLATE
     Indication: Product used for unknown indication
     Dosage: 160 MICROGRAM, BID

REACTIONS (4)
  - Gingival disorder [Unknown]
  - Wrong technique in device usage process [Unknown]
  - Device defective [Unknown]
  - Device delivery system issue [Unknown]
